FAERS Safety Report 8347313-9 (Version None)
Quarter: 2012Q2

REPORT INFORMATION
  Report Type: 
  Country: None (occurrence: None)
  Receive Date: 20120507
  Receipt Date: 20120425
  Transmission Date: 20120825
  Serious: Yes (Hospitalization)
  Sender: FDA-Public Use
  Company Number: 2012SP022070

PATIENT
  Sex: Female

DRUGS (4)
  1. VICTRELIS [Suspect]
     Indication: HEPATITIS C
  2. ZYPREXA [Concomitant]
  3. RIBAVIRIN [Suspect]
     Indication: HEPATITIS C
  4. PEG-INTRON [Suspect]
     Indication: HEPATITIS C
     Dates: end: 20120328

REACTIONS (1)
  - HALLUCINATION, AUDITORY [None]
